FAERS Safety Report 8338664 (Version 5)
Quarter: 2013Q3

REPORT INFORMATION
  Report Type: Report from Study
  Country: JP (occurrence: JP)
  Receive Date: 20120117
  Receipt Date: 20130905
  Transmission Date: 20140515
  Serious: Yes (Hospitalization)
  Sender: FDA-Public Use
  Company Number: JP-BRISTOL-MYERS SQUIBB COMPANY-16349375

PATIENT
  Age: 19 Year
  Sex: Female
  Weight: 49 kg

DRUGS (2)
  1. ABILIFY TABS [Suspect]
     Indication: SCHIZOPHRENIA
     Route: 048
     Dates: start: 20111017, end: 20120106
  2. BROTIZOLAM [Concomitant]
     Dosage: TABS
     Dates: start: 20111017

REACTIONS (1)
  - Schizophrenia [Recovered/Resolved]
